FAERS Safety Report 12000638 (Version 2)
Quarter: 2016Q1

REPORT INFORMATION
  Report Type: Spontaneous
  Country: US (occurrence: US)
  Receive Date: 20160204
  Receipt Date: 20160209
  Transmission Date: 20160526
  Serious: No
  Sender: FDA-Public Use
  Company Number: US-PFIZER INC-2016063697

PATIENT
  Sex: Male

DRUGS (1)
  1. VIAGRA [Suspect]
     Active Substance: SILDENAFIL CITRATE
     Dosage: 100 MG, UNK
     Dates: start: 201502

REACTIONS (5)
  - Disturbance in sexual arousal [Unknown]
  - Headache [Unknown]
  - Insomnia [Unknown]
  - Drug effect incomplete [Unknown]
  - Spontaneous penile erection [Unknown]

NARRATIVE: CASE EVENT DATE: 201502
